FAERS Safety Report 23355260 (Version 1)
Quarter: 2024Q1

REPORT INFORMATION
  Report Type: Spontaneous
  Country: FR (occurrence: FR)
  Receive Date: 20240102
  Receipt Date: 20240102
  Transmission Date: 20240410
  Serious: Yes (Death)
  Sender: FDA-Public Use
  Company Number: None

PATIENT
  Age: 52 Year
  Sex: Female

DRUGS (1)
  1. KADCYLA [Suspect]
     Active Substance: ADO-TRASTUZUMAB EMTANSINE
     Indication: Breast cancer
     Dosage: 290 MG/G
     Route: 065
     Dates: start: 20171001, end: 20231123

REACTIONS (2)
  - Oesophageal varices haemorrhage [Fatal]
  - Portal hypertension [Fatal]

NARRATIVE: CASE EVENT DATE: 20231129
